FAERS Safety Report 9522130 (Version 2)
Quarter: 2013Q4

REPORT INFORMATION
  Report Type: Report from Study
  Country: US (occurrence: US)
  Receive Date: 20130913
  Receipt Date: 20131009
  Transmission Date: 20140711
  Serious: Yes (Hospitalization, Other)
  Sender: FDA-Public Use
  Company Number: US-TEVA-431171USA

PATIENT
  Sex: Female
  Weight: 74.68 kg

DRUGS (2)
  1. CLARAVIS [Suspect]
     Indication: ACNE
     Dosage: 40 MILLIGRAM DAILY;
     Dates: end: 20130824
  2. ORAL CONTRACEPTIVE NOS [Concomitant]

REACTIONS (1)
  - Suicidal ideation [Unknown]
